FAERS Safety Report 19866481 (Version 4)
Quarter: 2022Q1

REPORT INFORMATION
  Report Type: Spontaneous
  Country: US (occurrence: US)
  Receive Date: 20210921
  Receipt Date: 20220106
  Transmission Date: 20220423
  Serious: Yes (Death, Life-Threatening, Hospitalization)
  Sender: FDA-Public Use
  Company Number: US-DSJP-DSU-2021-130693

PATIENT
  Age: 43 Year
  Sex: Male
  Weight: 87.982 kg

DRUGS (2)
  1. ENHERTU [Suspect]
     Active Substance: FAM-TRASTUZUMAB DERUXTECAN-NXKI
     Indication: Colorectal cancer
     Dosage: 550 MG, ONCE EVERY 3 WK (C1)
     Route: 042
     Dates: start: 20210707, end: 20210707
  2. ENHERTU [Suspect]
     Active Substance: FAM-TRASTUZUMAB DERUXTECAN-NXKI
     Indication: Colon cancer
     Dosage: 550 MG, ONCE EVERY 3 WK (C3)
     Route: 042
     Dates: start: 20210518, end: 20210518

REACTIONS (5)
  - Pneumonia [Fatal]
  - Interstitial lung disease [Fatal]
  - Pneumonitis [Fatal]
  - Pneumomediastinum [Fatal]
  - Off label use [Not Recovered/Not Resolved]

NARRATIVE: CASE EVENT DATE: 20210101
